FAERS Safety Report 5054103-1 (Version None)
Quarter: 2006Q3

REPORT INFORMATION
  Report Type: 
  Country: None (occurrence: None)
  Receive Date: 20060713
  Receipt Date: 20060630
  Transmission Date: 20061208
  Serious: Yes (Hospitalization, Disabling, Other)
  Sender: FDA-Public Use
  Company Number: 2006JP001556

PATIENT
  Age: 66 Year
  Sex: Female
  Weight: 56 kg

DRUGS (14)
  1. PROGRAF [Suspect]
     Indication: MYASTHENIA GRAVIS
     Dosage: SEE IMAGE
     Route: 048
     Dates: end: 20060525
  2. PROGRAF [Suspect]
     Indication: MYASTHENIA GRAVIS
     Dosage: SEE IMAGE
     Route: 048
     Dates: start: 20031023
  3. TAKEPRON (LANSOPRAZOLE) TABLET [Suspect]
     Dosage: 30 MG, UID/QD, ORAL
     Route: 048
     Dates: start: 20031029
  4. MESTINON [Concomitant]
  5. LIPITOR [Concomitant]
  6. LASIX (FUROSEMIDE SODIUM) TABLET [Concomitant]
  7. PREDONINE (PREDNISOLONE SODIUM SUCCINATE) TABLET [Concomitant]
  8. PERSANTIN (DIPYRIDAMOLE) CAPSULE [Concomitant]
  9. MUCOSTA (REBAMIPIDE) TABLET [Concomitant]
  10. AMLODIN (AMLODIPINE BESILATE) TABLET [Concomitant]
  11. FERRUM (SACCHARATED IRON OXIDE) CAPSULE [Concomitant]
  12. PURSENNID (SENNOSIDE A+B CALCIUM) TABLET [Concomitant]
  13. ADALAT CONTROLLED RELEASE TABLET [Concomitant]
  14. FRANDOL (ISOSORBIDE DINITRATE) TAPE [Concomitant]

REACTIONS (5)
  - CONDITION AGGRAVATED [None]
  - NEPHROTIC SYNDROME [None]
  - NEUTROPENIA [None]
  - RENAL IMPAIRMENT [None]
  - WHITE BLOOD CELL COUNT DECREASED [None]
